FAERS Safety Report 14651444 (Version 1)
Quarter: 2018Q1

REPORT INFORMATION
  Report Type: Spontaneous
  Country: CA (occurrence: CA)
  Receive Date: 20180316
  Receipt Date: 20180316
  Transmission Date: 20180509
  Serious: Yes (Other)
  Sender: FDA-Public Use
  Company Number: CA-CONCORDIA PHARMACEUTICALS INC.-MAPI_00010605

PATIENT
  Sex: Male

DRUGS (8)
  1. METHOTREXATE. [Suspect]
     Active Substance: METHOTREXATE
     Indication: RHEUMATOID ARTHRITIS
     Route: 058
     Dates: end: 20170518
  2. FOLIC ACID. [Suspect]
     Active Substance: FOLIC ACID
     Indication: RHEUMATOID ARTHRITIS
     Route: 065
  3. PREDNISONE. [Suspect]
     Active Substance: PREDNISONE
     Indication: RHEUMATOID ARTHRITIS
     Route: 065
  4. PLAQUENIL [Suspect]
     Active Substance: HYDROXYCHLOROQUINE SULFATE
     Indication: RHEUMATOID ARTHRITIS
     Route: 065
  5. XELJANZ [Concomitant]
     Active Substance: TOFACITINIB CITRATE
     Dates: start: 20151222
  6. SULFASALAZINE. [Concomitant]
     Active Substance: SULFASALAZINE
  7. NEXIUM [Suspect]
     Active Substance: ESOMEPRAZOLE MAGNESIUM
     Indication: RHEUMATOID ARTHRITIS
     Route: 065
  8. GABAPENTIN. [Suspect]
     Active Substance: GABAPENTIN
     Indication: RHEUMATOID ARTHRITIS
     Route: 065

REACTIONS (11)
  - Hand deformity [Unknown]
  - Pain in jaw [Unknown]
  - Aphonia [Unknown]
  - Rheumatoid arthritis [Unknown]
  - Arthrodesis [Unknown]
  - Feeding disorder [Unknown]
  - Nuclear magnetic resonance imaging abnormal [Unknown]
  - Arthralgia [Unknown]
  - Bursa removal [Unknown]
  - Chest pain [Unknown]
  - Neck pain [Unknown]
